FAERS Safety Report 8047860-3 (Version None)
Quarter: 2012Q1

REPORT INFORMATION
  Report Type: 
  Country: None (occurrence: None)
  Receive Date: 20120116
  Receipt Date: 20120109
  Transmission Date: 20120608
  Serious: Yes (Other)
  Sender: FDA-Public Use
  Company Number: PHHY2011IE101921

PATIENT
  Sex: Female
  Weight: 35.5 kg

DRUGS (8)
  1. CREON [Concomitant]
     Route: 048
  2. VITAMIN TAB [Concomitant]
     Dosage: UNK
     Route: 048
  3. AZITHROMYCIN [Concomitant]
     Dosage: 1 UNK, UNK
     Route: 048
  4. ALBUTEROL SULFATE AUTOHALER [Concomitant]
  5. TOBI [Suspect]
     Dosage: 112 MG, BID
  6. SALINE [Concomitant]
  7. PULMOZYME [Concomitant]
     Dosage: 2.5 MG, BID
  8. OMEPRAZOLE [Concomitant]
     Dosage: UNK
     Route: 048

REACTIONS (1)
  - HAEMOPTYSIS [None]
